FAERS Safety Report 21103051 (Version 1)
Quarter: 2022Q3

REPORT INFORMATION
  Report Type: Spontaneous
  Country: FR (occurrence: FR)
  Receive Date: 20220720
  Receipt Date: 20220720
  Transmission Date: 20221026
  Serious: Yes (Hospitalization)
  Sender: FDA-Public Use
  Company Number: None

PATIENT
  Age: 55 Year
  Sex: Male

DRUGS (3)
  1. DOXORUBICIN [Suspect]
     Active Substance: DOXORUBICIN
     Indication: T-cell lymphoma
     Dosage: UNIT DOSE: 30 MG, FREQUENCY TIME : 1 WEEK, DURATION : 7 DAYS
     Dates: end: 20210804
  2. VINORELBINE [Suspect]
     Active Substance: VINORELBINE TARTRATE
     Indication: T-cell lymphoma
     Dosage: UNIT DOSE: 40 MG, FREQUENCY TIME: 1 WEEK, DURATION : 7 DAYS, BASE
     Dates: end: 20210804
  3. GEMCITABINE [Suspect]
     Active Substance: GEMCITABINE
     Indication: T-cell lymphoma
     Dosage: UNIT DOSE: 2 GM, FREQUENCY TIME : 1 WEEK, DURATION : 7 DAYS
     Dates: end: 20210804

REACTIONS (1)
  - Capillary leak syndrome [Recovered/Resolved]

NARRATIVE: CASE EVENT DATE: 20210602
